FAERS Safety Report 4519776-8 (Version None)
Quarter: 2004Q4

REPORT INFORMATION
  Report Type: 
  Country: None (occurrence: None)
  Receive Date: 20041203
  Receipt Date: 20041203
  Transmission Date: 20050328
  Serious: Yes (Disabling)
  Sender: FDA-Public Use
  Company Number: None

PATIENT
  Age: 50 Year
  Sex: Male
  Weight: 110 kg

DRUGS (1)
  1. VIOXX [Suspect]
     Indication: ARTHRITIS
     Dosage: 25 MG   PRN-Q-DAY  ORAL
     Route: 048
     Dates: start: 20040801, end: 20041103

REACTIONS (4)
  - EMBOLISM [None]
  - QUADRIPLEGIA [None]
  - RESPIRATORY FAILURE [None]
  - SPINAL CORD INFARCTION [None]
